FAERS Safety Report 8415298-2 (Version None)
Quarter: 2012Q2

REPORT INFORMATION
  Report Type: 
  Country: None (occurrence: None)
  Receive Date: 20120323
  Receipt Date: 20111206
  Transmission Date: 20120825
  Serious: Yes (Hospitalization)
  Sender: FDA-Public Use
  Company Number: 163-21880-11121075

PATIENT
  Age: 69 Year
  Sex: Male

DRUGS (5)
  1. VELCADE [Concomitant]
  2. LENALIDOMIDE [Suspect]
     Indication: MULTIPLE MYELOMA
     Dosage: 15 MG, DAILY X 14 DAYS, PO
     Route: 048
     Dates: start: 20111025
  3. BABY ASPIRIN (ACETYLSALICYLIC ACID) (UNKNOWN) [Concomitant]
  4. DEXAMETHASONE [Concomitant]
  5. LIPITOR [Concomitant]

REACTIONS (1)
  - INFECTION [None]
